FAERS Safety Report 7698690-3 (Version None)
Quarter: 2011Q3

REPORT INFORMATION
  Report Type: 
  Country: None (occurrence: None)
  Receive Date: 20110819
  Receipt Date: 20110808
  Transmission Date: 20111222
  Serious: Yes (Hospitalization)
  Sender: FDA-Public Use
  Company Number: CA-JNJFOC-20110206591

PATIENT
  Sex: Female
  Weight: 86 kg

DRUGS (13)
  1. FOLIC ACID [Concomitant]
  2. REMICADE [Suspect]
     Indication: RHEUMATOID ARTHRITIS
     Dosage: DOSAGE FORM: VIAL
     Route: 042
     Dates: start: 20050701
  3. MURO-128 [Concomitant]
     Route: 061
     Dates: start: 20100429
  4. ATASOL [Concomitant]
     Dosage: ONCE IN 4 HOURS AS REQUIRED OR WHEN NEEDED
     Dates: start: 20100928
  5. METFORMIN [Concomitant]
     Dates: start: 20090101
  6. OMEPRAZOLE [Concomitant]
  7. HYDROXYQUINOLINE [Concomitant]
  8. CYCLOBENZAPRINE [Concomitant]
  9. RAMIPRIL [Concomitant]
  10. CELEBREX [Concomitant]
  11. CRESTOR [Concomitant]
  12. BIOTENE [Concomitant]
     Dosage: AS REQUIRED OR WHEN NEEDED
  13. CITALON [Concomitant]

REACTIONS (3)
  - BUNION [None]
  - INFECTION [None]
  - OSTEOMYELITIS [None]
